FAERS Safety Report 12844315 (Version 1)
Quarter: 2016Q4

REPORT INFORMATION
  Report Type: Spontaneous
  Country: US (occurrence: US)
  Receive Date: 20161013
  Receipt Date: 20161013
  Transmission Date: 20170207
  Serious: Yes (Other)
  Sender: FDA-Public Use
  Company Number: US-RELYPSA-RLY2016002845

PATIENT
  Sex: Male

DRUGS (26)
  1. COUMADIN [Concomitant]
     Active Substance: WARFARIN SODIUM
  2. ATENOLOL. [Concomitant]
     Active Substance: ATENOLOL
  3. SODIUM BICARBONATE. [Concomitant]
     Active Substance: SODIUM BICARBONATE
  4. IRON [Concomitant]
     Active Substance: IRON
  5. KAYEXALATE [Concomitant]
     Active Substance: SODIUM POLYSTYRENE SULFONATE
  6. VITAMIN D3 [Concomitant]
     Active Substance: CHOLECALCIFEROL
  7. MULTIVITAMIN [Concomitant]
     Active Substance: VITAMINS
  8. AMLODIPINE [Concomitant]
     Active Substance: AMLODIPINE BESYLATE
  9. KIONEX [Concomitant]
     Active Substance: SODIUM POLYSTYRENE SULFONATE
  10. VELTASSA [Suspect]
     Active Substance: PATIROMER
     Indication: HYPERKALAEMIA
     Dosage: 16.8 G, QD
     Route: 048
     Dates: start: 20160804
  11. MAGNESIUM [Concomitant]
     Active Substance: MAGNESIUM
  12. BISOPROLOL [Concomitant]
     Active Substance: BISOPROLOL
  13. TESTINON [Concomitant]
     Active Substance: TESTOSTERONE
  14. GLUCOSAMINE [Concomitant]
     Active Substance: GLUCOSAMINE
  15. PANTOPRAZOLE [Concomitant]
     Active Substance: PANTOPRAZOLE SODIUM
  16. MUCINEX [Concomitant]
     Active Substance: GUAIFENESIN
  17. ELIQUIS [Concomitant]
     Active Substance: APIXABAN
  18. NASONEX [Concomitant]
     Active Substance: MOMETASONE FUROATE
  19. FOLTX [Concomitant]
     Active Substance: CYANOCOBALAMIN CO-57\FOLIC ACID\PYRIDOXINE HYDROCHLORIDE
  20. TROSPIUM [Concomitant]
     Active Substance: TROSPIUM
  21. TYLENOL [Concomitant]
     Active Substance: ACETAMINOPHEN
  22. BYSTOLIC [Concomitant]
     Active Substance: NEBIVOLOL HYDROCHLORIDE
  23. DULCOLAX NOS [Concomitant]
     Active Substance: BISACODYL OR DOCUSATE SODIUM
  24. FIBER LAXATIVE [Concomitant]
     Active Substance: CALCIUM POLYCARBOPHIL
  25. VALSARTAN. [Concomitant]
     Active Substance: VALSARTAN
  26. ASPIRIN. [Concomitant]
     Active Substance: ASPIRIN

REACTIONS (2)
  - Dialysis device insertion [Unknown]
  - Drug dose omission [Unknown]

NARRATIVE: CASE EVENT DATE: 2016
